FAERS Safety Report 15994791 (Version 2)
Quarter: 2020Q2

REPORT INFORMATION
  Report Type: Report from Study
  Country: US (occurrence: US)
  Receive Date: 20190222
  Receipt Date: 20200623
  Transmission Date: 20200713
  Serious: No
  Sender: FDA-Public Use
  Company Number: US-BAYER-2019-038046

PATIENT
  Sex: Female

DRUGS (18)
  1. ZOLPIDEM [Concomitant]
     Active Substance: ZOLPIDEM TARTRATE
  2. ZYRTEC [Concomitant]
     Active Substance: CETIRIZINE HYDROCHLORIDE
  3. CITALOPRAM [Concomitant]
     Active Substance: CITALOPRAM HYDROBROMIDE
  4. FLUCONAZOLE. [Concomitant]
     Active Substance: FLUCONAZOLE
  5. LOVASTATIN. [Concomitant]
     Active Substance: LOVASTATIN
  6. BETASERON [Suspect]
     Active Substance: INTERFERON BETA-1B
     Indication: MULTIPLE SCLEROSIS
     Dosage: 0.3 MG, QOD
     Route: 058
     Dates: start: 20160309
  7. ALPRAZOLAM. [Concomitant]
     Active Substance: ALPRAZOLAM
  8. A-HYDROCORT [Concomitant]
     Active Substance: HYDROCORTISONE SODIUM SUCCINATE
  9. PROPRANOLOL [Concomitant]
     Active Substance: PROPRANOLOL HYDROCHLORIDE
  10. FLUTICASONE. [Concomitant]
     Active Substance: FLUTICASONE
  11. GABAPENTIN. [Concomitant]
     Active Substance: GABAPENTIN
  12. LEVOTHYROXIN [Concomitant]
     Active Substance: LEVOTHYROXINE
  13. BETASERON [Suspect]
     Active Substance: INTERFERON BETA-1B
     Indication: MULTIPLE SCLEROSIS
     Dosage: 0.25 MG, QOD
     Route: 058
  14. CETIRIZINE HYDROCHLORIDE. [Concomitant]
     Active Substance: CETIRIZINE HYDROCHLORIDE
  15. AMOXICILLIN;CLAVULANIC ACID;SODIUM [Concomitant]
  16. NITROFURANTOIN. [Concomitant]
     Active Substance: NITROFURANTOIN
  17. CLOTRIM-B [BECLOMETASONE DIPROPIONATE;CLOTRIMAZOLE] [Concomitant]
  18. DONEPEZIL. [Concomitant]
     Active Substance: DONEPEZIL

REACTIONS (2)
  - Product dose omission [None]
  - Product dose omission [Not Recovered/Not Resolved]
